FAERS Safety Report 17448038 (Version 2)
Quarter: 2020Q3

REPORT INFORMATION
  Report Type: Spontaneous
  Country: FR (occurrence: FR)
  Receive Date: 20200222
  Receipt Date: 20200917
  Transmission Date: 20201102
  Serious: Yes (Hospitalization, Other)
  Sender: FDA-Public Use
  Company Number: FR-ACCORD-173304

PATIENT
  Age: 56 Year
  Sex: Female
  Weight: 73 kg

DRUGS (6)
  1. STREPSILS (AMYLMETACRESOL\DICHLOROBENZYL ALCOHOL\LIDOCAINE) [Suspect]
     Active Substance: AMYLMETACRESOL\DICHLOROBENZYL ALCOHOL\LIDOCAINE
     Indication: RHINITIS
     Dosage: INCONNUE
     Route: 048
     Dates: start: 20190521, end: 20190523
  2. HEXASPRAY [Suspect]
     Active Substance: BICLOTYMOL
     Indication: RHINITIS
     Dosage: (MOUTHWASH IN PRESSURIZED BOTTLE)
     Route: 049
     Dates: start: 20190521, end: 20190523
  3. HYDROCHLOROTHIAZIDE. [Suspect]
     Active Substance: HYDROCHLOROTHIAZIDE
     Indication: PRODUCT USED FOR UNKNOWN INDICATION
     Route: 048
  4. BISOPROLOL [Suspect]
     Active Substance: BISOPROLOL
     Indication: PRODUCT USED FOR UNKNOWN INDICATION
     Route: 048
  5. ZELITREX [Suspect]
     Active Substance: VALACYCLOVIR HYDROCHLORIDE
     Indication: HERPES SIMPLEX
     Dosage: STRENGTH?500 MG
     Route: 048
     Dates: start: 2016
  6. EFFERALGAN [Suspect]
     Active Substance: ACETAMINOPHEN
     Indication: RHINITIS
     Dosage: INCONNUE
     Route: 048
     Dates: start: 20190521, end: 20190523

REACTIONS (1)
  - Acute generalised exanthematous pustulosis [Recovered/Resolved]

NARRATIVE: CASE EVENT DATE: 20190526
